FAERS Safety Report 9415890 (Version 3)
Quarter: 2013Q3

REPORT INFORMATION
  Report Type: Report from Study
  Country: DE (occurrence: DE)
  Receive Date: 20130724
  Receipt Date: 20130829
  Transmission Date: 20140515
  Serious: Yes (Hospitalization)
  Sender: FDA-Public Use
  Company Number: DE-BIOGENIDEC-2013BI063670

PATIENT
  Age: 46 Year
  Sex: Female
  Weight: 70 kg

DRUGS (4)
  1. BG00012 [Suspect]
     Indication: MULTIPLE SCLEROSIS
     Dates: start: 20101227
  2. ALFUSIN [Concomitant]
     Indication: MULTIPLE SCLEROSIS
     Route: 048
     Dates: start: 20100430
  3. JODETTEN [Concomitant]
     Indication: HYPERTHYROIDISM
     Route: 048
     Dates: start: 1999
  4. CETIRIZIN [Concomitant]
     Indication: HYPERSENSITIVITY
     Route: 048
     Dates: start: 20130408

REACTIONS (1)
  - Ovarian adhesion [Recovered/Resolved]
